FAERS Safety Report 19724616 (Version 1)
Quarter: 2021Q3

REPORT INFORMATION
  Report Type: Report from Study
  Country: BR (occurrence: BR)
  Receive Date: 20210819
  Receipt Date: 20210819
  Transmission Date: 20211014
  Serious: Yes (Life-Threatening, Other)
  Sender: FDA-Public Use
  Company Number: NVSC2021BR184482

PATIENT
  Age: 57 Year
  Sex: Female

DRUGS (1)
  1. ADALIMUMAB [Suspect]
     Active Substance: ADALIMUMAB
     Indication: PRODUCT USED FOR UNKNOWN INDICATION
     Dosage: UNK
     Route: 065

REACTIONS (21)
  - Myocardial infarction [Unknown]
  - Psoriasis [Recovering/Resolving]
  - Blister [Unknown]
  - Chest pain [Recovered/Resolved]
  - COVID-19 [Unknown]
  - Asthenia [Unknown]
  - Pain in extremity [Recovered/Resolved]
  - Fatigue [Unknown]
  - Spondylitis [Unknown]
  - Psoriatic arthropathy [Unknown]
  - Illness [Recovering/Resolving]
  - Musculoskeletal stiffness [Unknown]
  - Malaise [Unknown]
  - Dyspnoea [Recovered/Resolved]
  - Swelling [Unknown]
  - Near death experience [Recovering/Resolving]
  - Diabetes mellitus [Unknown]
  - Feeling abnormal [Recovering/Resolving]
  - Jugular vein thrombosis [Unknown]
  - Ankylosing spondylitis [Unknown]
  - Feeding disorder [Unknown]

NARRATIVE: CASE EVENT DATE: 202105
